FAERS Safety Report 20348519 (Version 1)
Quarter: 2022Q1

REPORT INFORMATION
  Report Type: Spontaneous
  Country: FR (occurrence: FR)
  Receive Date: 20220119
  Receipt Date: 20220119
  Transmission Date: 20220423
  Serious: Yes (Hospitalization)
  Sender: FDA-Public Use
  Company Number: None

PATIENT
  Age: 35 Year
  Sex: Male

DRUGS (5)
  1. BUPRENORPHINE [Suspect]
     Active Substance: BUPRENORPHINE
     Dosage: NR
     Route: 045
     Dates: start: 2017
  2. TOBACCO LEAF [Suspect]
     Active Substance: TOBACCO LEAF
     Dosage: NR
     Route: 055
     Dates: start: 2002
  3. COCAINE [Suspect]
     Active Substance: COCAINE
     Dosage: NR
     Route: 045
     Dates: start: 2003
  4. ALCOHOL [Suspect]
     Active Substance: ALCOHOL
     Dosage: NR
     Route: 048
     Dates: start: 1995
  5. CANNABIS SATIVA SUBSP. INDICA TOP [Suspect]
     Active Substance: CANNABIS SATIVA SUBSP. INDICA TOP
     Dosage: NR
     Route: 055
     Dates: start: 2002

REACTIONS (6)
  - Drug abuse [Not Recovered/Not Resolved]
  - Cognitive disorder [Not Recovered/Not Resolved]
  - Behavioural addiction [Not Recovered/Not Resolved]
  - Withdrawal syndrome [Recovered/Resolved]
  - Hepatic enzyme increased [Not Recovered/Not Resolved]
  - Intentional product use issue [Unknown]

NARRATIVE: CASE EVENT DATE: 20020101
